FAERS Safety Report 7516935-7 (Version None)
Quarter: 2011Q2

REPORT INFORMATION
  Report Type: 
  Country: None (occurrence: None)
  Receive Date: 20110526
  Receipt Date: 20110526
  Transmission Date: 20111010
  Serious: Yes (Hospitalization, Other)
  Sender: FDA-Public Use
  Company Number: None

PATIENT
  Sex: Male
  Weight: 105.2345 kg

DRUGS (2)
  1. HUMIRA [Suspect]
     Indication: RHEUMATOID ARTHRITIS
     Dosage: ONE PEN BI WEEKLY SQ
     Route: 058
     Dates: start: 20101026, end: 20110216
  2. HUMIRA [Suspect]
     Indication: ANKYLOSING SPONDYLITIS
     Dosage: ONE PEN BI WEEKLY SQ
     Route: 058
     Dates: start: 20101026, end: 20110216

REACTIONS (4)
  - JOINT SWELLING [None]
  - DERMATITIS BULLOUS [None]
  - DEEP VEIN THROMBOSIS [None]
  - PAIN [None]
